APPROVED DRUG PRODUCT: JATENZO
Active Ingredient: TESTOSTERONE UNDECANOATE
Strength: 158MG
Dosage Form/Route: CAPSULE;ORAL
Application: N206089 | Product #001
Applicant: TOLMAR INC
Approved: Mar 27, 2019 | RLD: Yes | RS: No | Type: RX

PATENTS:
Patent 8492369 | Expires: Dec 20, 2030
Patent 8241664 | Expires: Mar 29, 2029
Patent 10543219 | Expires: Apr 12, 2030
Patent 11564933 | Expires: Apr 12, 2039
Patent 11179403 | Expires: Apr 12, 2030
Patent 11331325 | Expires: Jan 6, 2027
Patent 11426416 | Expires: Apr 12, 2030
Patent 11179402 | Expires: Apr 14, 2026
Patent 10617696 | Expires: Apr 12, 2030
Patent 8778916 | Expires: Apr 12, 2030